FAERS Safety Report 15276324 (Version 1)
Quarter: 2018Q3

REPORT INFORMATION
  Report Type: Spontaneous
  Country: US (occurrence: US)
  Receive Date: 20180728
  Receipt Date: 20180728
  Transmission Date: 20181010
  Serious: No
  Sender: FDA-Public Use
  Company Number: None

PATIENT
  Age: 79 Year
  Sex: Female

DRUGS (1)
  1. ENBREL [Suspect]
     Active Substance: ETANERCEPT
     Indication: RHEUMATOID ARTHRITIS
     Dosage: ?          OTHER FREQUENCY:EVERY 10 DAYS;?
     Route: 058
     Dates: start: 20161104

REACTIONS (4)
  - Injection site swelling [None]
  - Injection site erythema [None]
  - Incorrect drug administration rate [None]
  - Injection site irritation [None]

NARRATIVE: CASE EVENT DATE: 20180715
